FAERS Safety Report 21266871 (Version 2)
Quarter: 2022Q4

REPORT INFORMATION
  Report Type: Report from Study
  Country: US (occurrence: US)
  Receive Date: 20220829
  Receipt Date: 20221017
  Transmission Date: 20230113
  Serious: Yes (Death, Life-Threatening, Other)
  Sender: FDA-Public Use
  Company Number: US-QUANTAMLEAP-2022-CYP-US-00143

PATIENT
  Age: 34 Year
  Sex: Male
  Weight: 116 kg

DRUGS (26)
  1. REMDESIVIR [Suspect]
     Active Substance: REMDESIVIR
     Indication: COVID-19
     Dosage: 100 MG, QD
     Route: 042
     Dates: start: 20210915, end: 20210918
  2. CYPROHEPTADINE [Suspect]
     Active Substance: CYPROHEPTADINE
     Indication: COVID-19
     Dosage: 16 MG, QD
     Route: 048
     Dates: start: 20210918, end: 20210920
  3. CYPROHEPTADINE [Suspect]
     Active Substance: CYPROHEPTADINE
     Dosage: 24 MG, QD
     Route: 048
     Dates: start: 20210915, end: 20210917
  4. CYPROHEPTADINE [Suspect]
     Active Substance: CYPROHEPTADINE
     Dosage: 24 MG, QD
     Route: 048
     Dates: start: 20210921, end: 20210922
  5. CYPROHEPTADINE [Suspect]
     Active Substance: CYPROHEPTADINE
     Dosage: 16 MG, QD
     Route: 048
     Dates: start: 20210923, end: 20210923
  6. CYPROHEPTADINE [Suspect]
     Active Substance: CYPROHEPTADINE
     Dosage: 8 MG, QD
     Route: 048
     Dates: start: 20210924, end: 20210924
  7. CYPROHEPTADINE [Suspect]
     Active Substance: CYPROHEPTADINE
     Dosage: 16 MG, QD
     Route: 048
     Dates: start: 20210914, end: 20210914
  8. ARFORMOTEROL [Concomitant]
     Active Substance: ARFORMOTEROL
     Dosage: UNK
     Dates: start: 20210928
  9. ENOXAPARIN [Concomitant]
     Active Substance: ENOXAPARIN
     Dosage: UNK
     Dates: start: 20210914, end: 20211123
  10. METHYLPREDNISOLONE [Concomitant]
     Active Substance: METHYLPREDNISOLONE
     Dosage: UNK
     Dates: start: 20210918, end: 20211108
  11. VECURONIUM [Concomitant]
     Active Substance: VECURONIUM BROMIDE
     Dosage: UNK
     Dates: start: 20211020, end: 20211122
  12. VECURONIUM [Concomitant]
     Active Substance: VECURONIUM BROMIDE
     Dosage: BOLUS AND THE RATE INCREASED TO 100 MG/HR
     Dates: start: 20211122
  13. BUDESONIDE [Concomitant]
     Active Substance: BUDESONIDE
     Dosage: UNK
     Dates: start: 20210916, end: 20210923
  14. EPINEPHRINE [Concomitant]
     Active Substance: EPINEPHRINE
  15. NOREPINEPHRINE [Concomitant]
     Active Substance: NOREPINEPHRINE
     Dosage: UNK
     Dates: start: 20211018, end: 20211123
  16. VASOPRESSIN [Concomitant]
     Active Substance: VASOPRESSIN
     Dosage: UNK
     Dates: start: 20211030, end: 20211123
  17. ACETAMINOPHEN [Concomitant]
     Active Substance: ACETAMINOPHEN
     Dosage: UNK
     Dates: start: 20210913, end: 20210923
  18. ALBUTEROL [Concomitant]
     Active Substance: ALBUTEROL
     Dosage: UNK
     Dates: start: 20210915, end: 20211123
  19. ASCORBIC ACID [Concomitant]
     Active Substance: ASCORBIC ACID
     Dosage: UNK
     Dates: start: 20210915, end: 20211123
  20. CEFEPIME [Concomitant]
     Active Substance: CEFEPIME HYDROCHLORIDE
     Dosage: UNK
     Dates: start: 20211117, end: 20211123
  21. CHOLECALCIFEROL [Concomitant]
     Active Substance: CHOLECALCIFEROL
     Dosage: UNK
     Dates: start: 20210923, end: 20211123
  22. VANCOMYCIN [Concomitant]
     Active Substance: VANCOMYCIN
     Dosage: UNK
     Dates: start: 20211117, end: 20211120
  23. ZINC SULFATE [Concomitant]
     Active Substance: ZINC SULFATE
     Dosage: UNK
     Dates: start: 20210914, end: 20211123
  24. CEFTRIAXONE [Concomitant]
     Active Substance: CEFTRIAXONE
     Dosage: UNK
     Dates: start: 20211117
  25. CEFAZOLIN [Concomitant]
     Active Substance: CEFAZOLIN
     Dosage: UNK
     Dates: start: 20211104
  26. PIPERACILLIN [Concomitant]
     Active Substance: PIPERACILLIN
     Dosage: UNK
     Dates: start: 20211101, end: 20211104

REACTIONS (1)
  - Respiratory failure [Fatal]

NARRATIVE: CASE EVENT DATE: 20211122
